FAERS Safety Report 7913928-2 (Version None)
Quarter: 2011Q4

REPORT INFORMATION
  Report Type: 
  Country: None (occurrence: None)
  Receive Date: 20111115
  Receipt Date: 20111110
  Transmission Date: 20120403
  Serious: Yes (Death, Hospitalization)
  Sender: FDA-Public Use
  Company Number: FR-PFIZER INC-2011275188

PATIENT
  Age: 87 Year
  Sex: Female

DRUGS (2)
  1. RISPERDAL [Suspect]
     Indication: DEMENTIA
     Dosage: 0.5 MG DAILY
     Route: 048
     Dates: start: 20090101, end: 20110713
  2. EFFEXOR XR [Suspect]
     Indication: MAJOR DEPRESSION
     Dosage: 37.5 MG DAILY
     Route: 048
     Dates: start: 20110310, end: 20110713

REACTIONS (3)
  - CARDIAC ARREST [None]
  - RESPIRATORY DISTRESS [None]
  - SUBILEUS [None]
